FAERS Safety Report 6840176-X (Version None)
Quarter: 2010Q3

REPORT INFORMATION
  Report Type: 
  Country: None (occurrence: None)
  Receive Date: 20100713
  Receipt Date: 20100713
  Transmission Date: 20110219
  Serious: Yes (Other)
  Sender: FDA-Public Use
  Company Number: None

PATIENT
  Sex: Female
  Weight: 82.8 kg

DRUGS (11)
  1. NPLATE [Suspect]
     Indication: IDIOPATHIC THROMBOCYTOPENIC PURPURA
     Dosage: 340MCG WEEKLY SQ
     Route: 058
     Dates: start: 20090108, end: 20100708
  2. VITAMIN C [Concomitant]
  3. CENTRUM VITAMINS [Concomitant]
  4. IMITREX [Concomitant]
  5. PREMPRO [Concomitant]
  6. POLY IRON [Concomitant]
  7. FISH OIL [Concomitant]
  8. DOXEPIN HCL [Concomitant]
  9. NIACIN [Concomitant]
  10. PRILOSEC [Concomitant]
  11. GEMFIBROZIL [Concomitant]

REACTIONS (3)
  - ARTHRALGIA [None]
  - MYALGIA [None]
  - TRIGGER FINGER [None]
